FAERS Safety Report 4986190-0 (Version None)
Quarter: 2006Q2

REPORT INFORMATION
  Report Type: 
  Country: None (occurrence: None)
  Receive Date: 20060428
  Receipt Date: 20051025
  Transmission Date: 20061013
  Serious: Yes (Hospitalization)
  Sender: FDA-Public Use
  Company Number: US-MERCK-0510USA09207

PATIENT
  Age: 51 Year
  Sex: Female
  Weight: 159 kg

DRUGS (9)
  1. VIOXX [Suspect]
     Indication: PAIN
     Route: 048
     Dates: start: 19990101, end: 20040301
  2. VIOXX [Suspect]
     Indication: OSTEOARTHRITIS
     Route: 048
     Dates: start: 19990101, end: 20040301
  3. LOTENSIN [Concomitant]
     Indication: HYPERTENSION
     Route: 048
     Dates: start: 19870101
  4. PROTONIX [Concomitant]
     Route: 048
  5. FLEXERIL [Concomitant]
     Indication: PAIN
     Route: 065
     Dates: start: 20020101
  6. GLUCOPHAGE [Concomitant]
     Indication: DIABETES MELLITUS
     Route: 048
     Dates: start: 19870101
  7. LASIX [Concomitant]
     Indication: OEDEMA PERIPHERAL
     Route: 065
     Dates: end: 20020101
  8. MILK OF MAGNESIA TAB [Concomitant]
     Route: 048
  9. LORTAB [Concomitant]
     Route: 048

REACTIONS (19)
  - ABDOMINAL PAIN [None]
  - BACK INJURY [None]
  - BLOOD GLUCOSE INCREASED [None]
  - BLOOD PRESSURE INCREASED [None]
  - DIABETES MELLITUS INADEQUATE CONTROL [None]
  - DIARRHOEA [None]
  - FALL [None]
  - JOINT INJURY [None]
  - LIMB INJURY [None]
  - NAUSEA [None]
  - OSTEOARTHRITIS [None]
  - PAIN [None]
  - PAIN IN EXTREMITY [None]
  - POLLAKIURIA [None]
  - PULMONARY EMBOLISM [None]
  - SKELETAL INJURY [None]
  - THROMBOSIS [None]
  - URINARY INCONTINENCE [None]
  - VOMITING [None]
